FAERS Safety Report 15651053 (Version 1)
Quarter: 2018Q4

REPORT INFORMATION
  Report Type: Spontaneous
  Country: FR (occurrence: FR)
  Receive Date: 20181123
  Receipt Date: 20181123
  Transmission Date: 20190205
  Serious: Yes (Death, Hospitalization)
  Sender: FDA-Public Use
  Company Number: FR-AXELLIA-002049

PATIENT
  Age: 73 Year
  Sex: Male

DRUGS (1)
  1. DAPTOMYCIN. [Suspect]
     Active Substance: DAPTOMYCIN
     Indication: ANTIBIOTIC THERAPY
     Dosage: UNSPECIFIED
     Route: 042
     Dates: start: 20180927, end: 20181011

REACTIONS (4)
  - Hypertransaminasaemia [Not Recovered/Not Resolved]
  - Overdose [Unknown]
  - Cholestasis [Not Recovered/Not Resolved]
  - Bilirubin conjugated increased [Not Recovered/Not Resolved]

NARRATIVE: CASE EVENT DATE: 20180928
